FAERS Safety Report 4960621-4 (Version None)
Quarter: 2006Q2

REPORT INFORMATION
  Report Type: 
  Country: None (occurrence: None)
  Receive Date: 20060403
  Receipt Date: 20050930
  Transmission Date: 20061013
  Serious: Yes (Hospitalization)
  Sender: FDA-Public Use
  Company Number: US-MERCK-0510USA01029

PATIENT
  Age: 51 Year
  Sex: Male
  Weight: 115 kg

DRUGS (1)
  1. VIOXX [Suspect]
     Indication: PAIN IN EXTREMITY
     Route: 048
     Dates: start: 19990501, end: 20040930

REACTIONS (4)
  - CHEST PAIN [None]
  - EMOTIONAL DISORDER [None]
  - MENTAL DISORDER [None]
  - THROMBOSIS [None]
